FAERS Safety Report 17139739 (Version 2)
Quarter: 2019Q4

REPORT INFORMATION
  Report Type: Report from Study
  Country: US (occurrence: US)
  Receive Date: 20191211
  Receipt Date: 20191226
  Transmission Date: 20200122
  Serious: No
  Sender: FDA-Public Use
  Company Number: NVSC2019US006582

PATIENT
  Sex: Female

DRUGS (1)
  1. COSENTYX [Suspect]
     Active Substance: SECUKINUMAB
     Indication: PSORIASIS
     Dosage: 300 MG, QW
     Route: 058

REACTIONS (7)
  - Depression [Not Recovered/Not Resolved]
  - Urticaria [Unknown]
  - Macule [Not Recovered/Not Resolved]
  - Influenza [Not Recovered/Not Resolved]
  - Ear infection [Recovered/Resolved]
  - Cough [Recovering/Resolving]
  - Pruritus [Not Recovered/Not Resolved]
